FAERS Safety Report 5955629-6 (Version None)
Quarter: 2008Q4

REPORT INFORMATION
  Report Type: 
  Country: None (occurrence: None)
  Receive Date: 20081117
  Receipt Date: 20081114
  Transmission Date: 20090506
  Serious: Yes (Hospitalization, Other)
  Sender: FDA-Public Use
  Company Number: DE-RB-002987-08

PATIENT
  Age: 43 Year
  Sex: Male

DRUGS (2)
  1. SUBUTEX [Suspect]
     Indication: DRUG DEPENDENCE
     Route: 060
     Dates: start: 20080601
  2. HEROIN [Suspect]
     Indication: DRUG USE FOR UNKNOWN INDICATION
     Dosage: DOSING INFORMATION UNKNOWN
     Route: 065

REACTIONS (8)
  - DIPLOPIA [None]
  - GAIT DISTURBANCE [None]
  - IVTH NERVE PARALYSIS [None]
  - NERVOUS SYSTEM DISORDER [None]
  - NYSTAGMUS [None]
  - SUBSTANCE ABUSE [None]
  - TREMOR [None]
  - VERTIGO [None]
